FAERS Safety Report 23281323 (Version 2)
Quarter: 2023Q4

REPORT INFORMATION
  Report Type: Report from Study
  Country: EG (occurrence: EG)
  Receive Date: 20231211
  Receipt Date: 20231214
  Transmission Date: 20240110
  Serious: Yes (Death, Hospitalization)
  Sender: FDA-Public Use
  Company Number: EG-002147023-NVSC2023EG262086

PATIENT
  Age: 54 Year
  Sex: Male

DRUGS (1)
  1. ENTRESTO [Suspect]
     Active Substance: SACUBITRIL\VALSARTAN
     Indication: Cardiac failure
     Dosage: 200 MG
     Route: 048

REACTIONS (2)
  - Death [Fatal]
  - Renal injury [Unknown]

NARRATIVE: CASE EVENT DATE: 20231208
